FAERS Safety Report 23518235 (Version 1)
Quarter: 2024Q1

REPORT INFORMATION
  Report Type: Spontaneous
  Country: US (occurrence: None)
  Receive Date: 20240213
  Receipt Date: 20240213
  Transmission Date: 20240410
  Serious: Yes (Hospitalization)
  Sender: FDA-Public Use
  Company Number: None

PATIENT
  Age: 81 Year
  Sex: Male

DRUGS (1)
  1. TYMLOS [Suspect]
     Active Substance: ABALOPARATIDE
     Indication: Osteoarthritis
     Dosage: FREQUENCY : DAILY;?
     Route: 058

REACTIONS (3)
  - Spinal compression fracture [None]
  - Disease complication [None]
  - Osteoporosis [None]

NARRATIVE: CASE EVENT DATE: 20240208
